FAERS Safety Report 7457620-X (Version None)
Quarter: 2011Q1

REPORT INFORMATION
  Report Type: 
  Country: None (occurrence: None)
  Receive Date: 20110302
  Receipt Date: 20101012
  Transmission Date: 20110831
  Serious: Yes (Death, Other)
  Sender: FDA-Public Use
  Company Number: 163-21880-10082229

PATIENT
  Age: 68 Year
  Sex: Male

DRUGS (7)
  1. GEMFIBROZIL [Concomitant]
  2. ZYRTEC [Concomitant]
  3. HYDROCHLOROTHIAZIDE [Concomitant]
  4. HUMULIN (NOVOLIN 20/80) [Concomitant]
  5. LANTUS [Concomitant]
  6. ZOCOR [Concomitant]
  7. REVLIMID [Suspect]
     Indication: 5Q MINUS SYNDROME
     Dosage: 10 MG, 1 IN 1 D, PO
     Route: 048
     Dates: start: 20100715, end: 20100718

REACTIONS (2)
  - ACUTE MYOCARDIAL INFARCTION [None]
  - CARDIAC ARREST [None]
